FAERS Safety Report 25492751 (Version 1)
Quarter: 2025Q2

REPORT INFORMATION
  Report Type: Spontaneous
  Country: PL (occurrence: PL)
  Receive Date: 20250630
  Receipt Date: 20250630
  Transmission Date: 20250717
  Serious: Yes (Death, Hospitalization, Other)
  Sender: GENMAB
  Company Number: PL-ABBVIE-6347787

PATIENT
  Age: 85 Year
  Sex: Male

DRUGS (1)
  1. EPCORITAMAB [Suspect]
     Active Substance: EPCORITAMAB
     Indication: Diffuse large B-cell lymphoma
     Route: 058
     Dates: start: 20250108

REACTIONS (10)
  - Death [Fatal]
  - Skin bacterial infection [Unknown]
  - General physical health deterioration [Unknown]
  - C-reactive protein increased [Recovering/Resolving]
  - Skin burning sensation [Unknown]
  - Diffuse large B-cell lymphoma [Unknown]
  - Erythema [Unknown]
  - Pruritus [Unknown]
  - Thrombocytopenia [Not Recovered/Not Resolved]
  - Blood lactate dehydrogenase increased [Unknown]

NARRATIVE: CASE EVENT DATE: 20250101
